FAERS Safety Report 5362989-6 (Version None)
Quarter: 2007Q2

REPORT INFORMATION
  Report Type: 
  Country: None (occurrence: None)
  Receive Date: 20070615
  Receipt Date: 20070605
  Transmission Date: 20071010
  Serious: Yes (Life-Threatening, Hospitalization, Other)
  Sender: FDA-Public Use
  Company Number: GXKR2007CH04894

PATIENT
  Age: 53 Year
  Sex: Female

DRUGS (8)
  1. METHADONE HCL [Suspect]
     Indication: DRUG DEPENDENCE
     Dosage: 75 MG, BID
  2. LOPINAVIR W/RITONAVIR (LOPINAVIR, RITONAVIR) [Suspect]
     Indication: HIV INFECTION
     Dosage: 400MG/100 MG, BID
     Dates: start: 20040701
  3. TENOFOVIR (TENOFOVIR) [Concomitant]
  4. DIDANOSINE (DIDANOSINE, DIDEOXYINOSINE) [Concomitant]
  5. FOSAMPRENAVIR (FOSAMPRENAVIR) [Concomitant]
  6. METHYLPHENIDATE HCL [Concomitant]
  7. OXAZEPAM [Concomitant]
  8. PAROXETINE HCL [Concomitant]

REACTIONS (15)
  - ABDOMINAL DISCOMFORT [None]
  - ASCITES [None]
  - ASTHENIA [None]
  - BLOOD MAGNESIUM DECREASED [None]
  - BLOOD PHOSPHORUS DECREASED [None]
  - BLOOD POTASSIUM DECREASED [None]
  - DRUG INTERACTION [None]
  - DRUG LEVEL INCREASED [None]
  - ELECTROCARDIOGRAM QT PROLONGED [None]
  - FATIGUE [None]
  - HEPATIC FAILURE [None]
  - HYPERLACTACIDAEMIA [None]
  - PALPITATIONS [None]
  - TORSADE DE POINTES [None]
  - WEIGHT DECREASED [None]
